FAERS Safety Report 5634938-4 (Version None)
Quarter: 2008Q1

REPORT INFORMATION
  Report Type: 
  Country: None (occurrence: None)
  Receive Date: 20080221
  Receipt Date: 20080221
  Transmission Date: 20080703
  Serious: Yes (Hospitalization)
  Sender: FDA-Public Use
  Company Number: None

PATIENT
  Sex: Female
  Weight: 73.0291 kg

DRUGS (1)
  1. CHANTIX [Suspect]
     Indication: SMOKING CESSATION THERAPY
     Dosage: REGULAR MONTHLY PACK  2X / DAY  PO
     Route: 048
     Dates: start: 20070916, end: 20071205

REACTIONS (7)
  - ABNORMAL BEHAVIOUR [None]
  - AGGRESSION [None]
  - AGITATION [None]
  - BIPOLAR DISORDER [None]
  - DEPRESSION [None]
  - MANIA [None]
  - SCREAMING [None]
